FAERS Safety Report 4465142-3 (Version None)
Quarter: 2004Q4

REPORT INFORMATION
  Report Type: 
  Country: None (occurrence: None)
  Receive Date: 20041004
  Receipt Date: 20040923
  Transmission Date: 20050328
  Serious: Yes (Hospitalization)
  Sender: FDA-Public Use
  Company Number: FR-JNJFOC-20040907866

PATIENT
  Age: 60 Year
  Sex: Male

DRUGS (10)
  1. REMINYL [Suspect]
     Indication: DEMENTIA
     Route: 049
     Dates: start: 20040728, end: 20040804
  2. DIPIPERON [Suspect]
     Indication: DRUG USE FOR UNKNOWN INDICATION
     Route: 049
  3. EBIXA [Concomitant]
     Indication: DEMENTIA
     Dates: start: 20040730, end: 20040804
  4. LESCOL [Concomitant]
     Route: 065
  5. IMOVANE [Concomitant]
     Route: 065
  6. DEROXAT [Concomitant]
     Route: 065
  7. ATHYMIL [Concomitant]
     Route: 065
  8. ZYLORIC [Concomitant]
     Route: 065
  9. FORLAX [Concomitant]
     Route: 065
  10. EQUANIL [Concomitant]
     Route: 065

REACTIONS (5)
  - ABNORMAL BEHAVIOUR [None]
  - LEUKOPENIA [None]
  - MEDIASTINAL DISORDER [None]
  - NEUTROPENIA [None]
  - VIRAL PERICARDITIS [None]
